FAERS Safety Report 7416776-5 (Version None)
Quarter: 2011Q2

REPORT INFORMATION
  Report Type: 
  Country: None (occurrence: None)
  Receive Date: 20110415
  Receipt Date: 20110408
  Transmission Date: 20111010
  Serious: No
  Sender: FDA-Public Use
  Company Number: US-BIOGENIDEC-2011BI013267

PATIENT
  Sex: Male

DRUGS (2)
  1. AVONEX [Suspect]
     Route: 030
  2. AVONEX [Suspect]
     Indication: MULTIPLE SCLEROSIS
     Route: 030
     Dates: start: 19960801

REACTIONS (9)
  - URINARY TRACT INFECTION [None]
  - MUSCLE SPASTICITY [None]
  - OPTIC NERVE DISORDER [None]
  - FAECAL INCONTINENCE [None]
  - TEMPERATURE INTOLERANCE [None]
  - MULTIPLE SCLEROSIS RELAPSE [None]
  - URINARY INCONTINENCE [None]
  - HYPOAESTHESIA [None]
  - PAIN IN EXTREMITY [None]
